FAERS Safety Report 19059065 (Version 2)
Quarter: 2021Q3

REPORT INFORMATION
  Report Type: Spontaneous
  Country: JP (occurrence: JP)
  Receive Date: 20210325
  Receipt Date: 20210701
  Transmission Date: 20211014
  Serious: Yes (Death, Life-Threatening, Hospitalization, Other)
  Sender: FDA-Public Use
  Company Number: JP-009507513-2007JPN000833J

PATIENT
  Age: 77 Year
  Sex: Male
  Weight: 49 kg

DRUGS (8)
  1. KEYTRUDA [Suspect]
     Active Substance: PEMBROLIZUMAB
     Indication: LUNG SQUAMOUS CELL CARCINOMA STAGE IV
     Dosage: 200 MILLIGRAM, Q3W
     Route: 041
     Dates: start: 20200303, end: 20200513
  2. PACLITAXEL ALBUMIN [Suspect]
     Active Substance: PACLITAXEL
     Indication: LUNG SQUAMOUS CELL CARCINOMA STAGE IV
     Dosage: 160 MILLIGRAM, Q3W
     Route: 041
     Dates: start: 20200303, end: 20200410
  3. PACLITAXEL ALBUMIN [Suspect]
     Active Substance: PACLITAXEL
     Dosage: 140 MILLIGRAM, Q3W
     Route: 041
     Dates: start: 20200417, end: 20200520
  4. FENTOS [Concomitant]
     Active Substance: FENTANYL
     Indication: PAIN
     Dosage: 0.5 MILLIGRAM, QD
     Route: 051
     Dates: start: 20200302, end: 20200722
  5. CARBOPLATIN. [Suspect]
     Active Substance: CARBOPLATIN
     Indication: LUNG SQUAMOUS CELL CARCINOMA STAGE IV
     Dosage: 550 MILLIGRAM, Q3W
     Route: 041
     Dates: start: 20200303, end: 20200325
  6. CALONAL [Concomitant]
     Active Substance: ACETAMINOPHEN
     Indication: PAIN
     Dosage: 600 MILLIGRAM, TID
     Route: 048
     Dates: start: 20200302, end: 20200722
  7. CARBOPLATIN. [Suspect]
     Active Substance: CARBOPLATIN
     Dosage: 450 MILLIGRAM, Q3W
     Route: 041
     Dates: start: 20200417, end: 20200513
  8. MAGNESIUM OXIDE. [Concomitant]
     Active Substance: MAGNESIUM OXIDE
     Indication: CONSTIPATION
     Dosage: 330 MILLIGRAM, TID
     Route: 048
     Dates: start: 20200303, end: 20200722

REACTIONS (5)
  - Inappropriate antidiuretic hormone secretion [Recovering/Resolving]
  - Malignant neoplasm progression [Fatal]
  - Immune-mediated hepatic disorder [Recovering/Resolving]
  - Nausea [Recovering/Resolving]
  - Gastrooesophageal reflux disease [Recovering/Resolving]

NARRATIVE: CASE EVENT DATE: 2020
